FAERS Safety Report 18130698 (Version 2)
Quarter: 2020Q3

REPORT INFORMATION
  Report Type: Spontaneous
  Country: CA (occurrence: CA)
  Receive Date: 20200810
  Receipt Date: 20200818
  Transmission Date: 20201103
  Serious: Yes (Other)
  Sender: FDA-Public Use
  Company Number: CA-PFIZER INC-2020281878

PATIENT
  Age: 59 Year
  Sex: Female

DRUGS (9)
  1. CBD OIL [Concomitant]
     Active Substance: CANNABIDIOL\HERBALS
     Dosage: AS NEEDED
  2. METHOTREXATE SODIUM. [Suspect]
     Active Substance: METHOTREXATE SODIUM
     Indication: RHEUMATOID ARTHRITIS
     Dosage: 25 MG, WEEKLY
     Route: 058
     Dates: start: 20190306
  3. RANITIDINE. [Concomitant]
     Active Substance: RANITIDINE
     Dosage: 150 MG, 2X/DAY
  4. SYSTANE LUBRICANT [Concomitant]
     Active Substance: POLYETHYLENE GLYCOL 400\PROPYLENE GLYCOL
     Dosage: UNK
     Dates: start: 20200522
  5. IBUPROFEN. [Concomitant]
     Active Substance: IBUPROFEN
     Indication: PAIN
     Dosage: 400 MG, 1X/DAY
  6. TEVETEN [EPROSARTAN] [Concomitant]
     Dosage: 400 MG, 2X/DAY
  7. CYMBALTA [Concomitant]
     Active Substance: DULOXETINE HYDROCHLORIDE
     Dosage: 90 MG, 1X/DAY
  8. FOLIC ACID. [Concomitant]
     Active Substance: FOLIC ACID
     Dosage: UNK
     Route: 048
     Dates: start: 20200530
  9. METOJECT PEN [Concomitant]
     Active Substance: METHOTREXATE
     Dosage: 25 MG/0.5 ML SYRINGE (1 UNIT), ONCE A WEEK

REACTIONS (15)
  - Arthralgia [Unknown]
  - Carpal tunnel syndrome [Unknown]
  - Off label use [Unknown]
  - Arthritis [Unknown]
  - Peripheral swelling [Unknown]
  - Anti-cyclic citrullinated peptide antibody positive [Unknown]
  - Pruritus [Unknown]
  - Chest pain [Unknown]
  - Blood creatinine increased [Unknown]
  - Drug ineffective [Unknown]
  - Hypersomnia [Unknown]
  - Rash pruritic [Unknown]
  - Product use issue [Unknown]
  - Fatigue [Unknown]
  - Depression [Unknown]

NARRATIVE: CASE EVENT DATE: 2019
